FAERS Safety Report 8370099-9 (Version None)
Quarter: 2012Q2

REPORT INFORMATION
  Report Type: 
  Country: None (occurrence: None)
  Receive Date: 20120518
  Receipt Date: 20120509
  Transmission Date: 20120825
  Serious: Yes (Life-Threatening, Hospitalization)
  Sender: FDA-Public Use
  Company Number: DE-JNJFOC-20120506852

PATIENT
  Sex: Female
  Weight: 67 kg

DRUGS (9)
  1. PANTOPRAZOLE [Concomitant]
  2. TORSEMIDE [Concomitant]
  3. OXAZEPAM [Concomitant]
  4. METOPROLOL TARTRATE AND HYDROCHLOROTHIAZIDE [Concomitant]
  5. MARCUMAR [Concomitant]
  6. DIOVAN [Concomitant]
  7. SIMVASTATIN [Concomitant]
  8. XARELTO [Suspect]
     Indication: ATRIAL FIBRILLATION
     Route: 048
     Dates: start: 20120308
  9. LERCANIDIPINE [Concomitant]

REACTIONS (10)
  - GENERAL PHYSICAL HEALTH DETERIORATION [None]
  - RENAL FUNCTION TEST ABNORMAL [None]
  - LIVER FUNCTION TEST ABNORMAL [None]
  - ALANINE AMINOTRANSFERASE INCREASED [None]
  - BLOOD UREA INCREASED [None]
  - GAMMA-GLUTAMYLTRANSFERASE INCREASED [None]
  - ASPARTATE AMINOTRANSFERASE INCREASED [None]
  - NAUSEA [None]
  - BLOOD CREATININE INCREASED [None]
  - BLOOD ALKALINE PHOSPHATASE NORMAL [None]
